FAERS Safety Report 8176871-2 (Version None)
Quarter: 2012Q1

REPORT INFORMATION
  Report Type: 
  Country: None (occurrence: None)
  Receive Date: 20120124
  Receipt Date: 20110422
  Transmission Date: 20120608
  Serious: Yes (Other)
  Sender: FDA-Public Use
  Company Number: WAES 1104USA03358

PATIENT
  Age: 65 Year
  Sex: Male

DRUGS (1)
  1. INVANZ [Suspect]
     Indication: DIABETIC FOOT INFECTION
     Dosage: 1 GM/DAILY/IV
     Route: 042
     Dates: start: 20110201, end: 20110201

REACTIONS (2)
  - CONVULSION [None]
  - OFF LABEL USE [None]
